FAERS Safety Report 19785597 (Version 2)
Quarter: 2021Q3

REPORT INFORMATION
  Report Type: Spontaneous
  Country: CN (occurrence: CN)
  Receive Date: 20210903
  Receipt Date: 20210915
  Transmission Date: 20211014
  Serious: Yes (Hospitalization, Other)
  Sender: FDA-Public Use
  Company Number: CN-SA-2021SA287986

PATIENT
  Age: 4 Year
  Sex: Female
  Weight: 19.5 kg

DRUGS (1)
  1. DUPIXENT [Suspect]
     Active Substance: DUPILUMAB
     Dosage: 300 MG
     Route: 058
     Dates: start: 20210728

REACTIONS (7)
  - Muscle twitching [Recovering/Resolving]
  - Off label use [Unknown]
  - Epilepsy [Recovering/Resolving]
  - Muscular weakness [Recovering/Resolving]
  - Unevaluable event [Recovering/Resolving]
  - Loss of consciousness [Recovered/Resolved]
  - Eye disorder [Recovering/Resolving]

NARRATIVE: CASE EVENT DATE: 2021
